FAERS Safety Report 19478034 (Version 2)
Quarter: 2021Q3

REPORT INFORMATION
  Report Type: Spontaneous
  Country: CL (occurrence: CL)
  Receive Date: 20210630
  Receipt Date: 20210803
  Transmission Date: 20211014
  Serious: Yes (Disabling)
  Sender: FDA-Public Use
  Company Number: CL-PFIZER INC-2021746316

PATIENT
  Age: 57 Year
  Sex: Female

DRUGS (1)
  1. XELJANZ [Suspect]
     Active Substance: TOFACITINIB CITRATE
     Dosage: UNK

REACTIONS (5)
  - Malaise [Unknown]
  - Bone pain [Unknown]
  - Loss of personal independence in daily activities [Unknown]
  - Eye infection [Unknown]
  - Gait inability [Unknown]

NARRATIVE: CASE EVENT DATE: 20210618
